FAERS Safety Report 5792563-9 (Version None)
Quarter: 2008Q2

REPORT INFORMATION
  Report Type: 
  Country: None (occurrence: None)
  Receive Date: 20080626
  Receipt Date: 20080618
  Transmission Date: 20081010
  Serious: Yes (Death)
  Sender: FDA-Public Use
  Company Number: US-GENENTECH-262977

PATIENT
  Sex: Female

DRUGS (3)
  1. BEVACIZUMAB [Suspect]
     Indication: TONGUE NEOPLASM MALIGNANT STAGE UNSPECIFIED
     Dates: start: 20080417
  2. CISPLATIN [Concomitant]
     Indication: SQUAMOUS CELL CARCINOMA
  3. RADIATION THERAPY [Concomitant]
     Indication: SQUAMOUS CELL CARCINOMA

REACTIONS (1)
  - SUDDEN DEATH [None]
